FAERS Safety Report 14945834 (Version 2)
Quarter: 2018Q2

REPORT INFORMATION
  Report Type: Report from Study
  Country: BR (occurrence: BR)
  Receive Date: 20180529
  Receipt Date: 20180612
  Transmission Date: 20180711
  Serious: Yes (Hospitalization, Other)
  Sender: FDA-Public Use
  Company Number: PHHY2018BR008096

PATIENT
  Age: 39 Year
  Sex: Male
  Weight: 80 kg

DRUGS (7)
  1. COSENTYX [Suspect]
     Active Substance: SECUKINUMAB
     Indication: ANKYLOSING SPONDYLITIS
     Dosage: 150 MG, UNK
     Route: 058
     Dates: start: 20170707
  2. INSULINE [Concomitant]
     Active Substance: INSULIN NOS
     Indication: DIABETES MELLITUS
     Dosage: 17 U, QD
     Route: 058
  3. GLIFAGE [Concomitant]
     Active Substance: METFORMIN HYDROCHLORIDE
     Indication: DIABETES MELLITUS
     Dosage: 4 DF (850 MG), QD
     Route: 048
  4. NPH INSULIN [Concomitant]
     Active Substance: INSULIN BEEF
     Indication: DIABETES MELLITUS
     Dosage: 34 U, QD
     Route: 058
  5. DUOFLAM [Concomitant]
     Active Substance: BETAMETHASONE DIPROPIONATE\BETAMETHASONE SODIUM PHOSPHATE
     Indication: ANKYLOSING SPONDYLITIS
     Dosage: 1 DF, EVERY 15 DAYS
     Route: 030
     Dates: start: 2017
  6. PRELONE [Concomitant]
     Active Substance: PREDNISOLONE
     Indication: ANKYLOSING SPONDYLITIS
     Dosage: 2 DF (5 MG), QD
     Route: 048
     Dates: start: 2016
  7. AZULFIDINE [Concomitant]
     Active Substance: SULFASALAZINE
     Indication: ANKYLOSING SPONDYLITIS
     Dosage: 2 DF (500 MG), QD
     Route: 048
     Dates: start: 2016

REACTIONS (10)
  - Pathogen resistance [Unknown]
  - Decreased immune responsiveness [Recovered/Resolved]
  - Hyperglycaemia [Unknown]
  - Decreased immune responsiveness [Unknown]
  - Nausea [Recovered/Resolved]
  - Blood glucose fluctuation [Recovered/Resolved]
  - Bacterial infection [Recovered/Resolved]
  - Vomiting [Recovered/Resolved]
  - Discomfort [Recovered/Resolved]
  - Bacterial infection [Unknown]

NARRATIVE: CASE EVENT DATE: 201804
